FAERS Safety Report 17685886 (Version 1)
Quarter: 2020Q2

REPORT INFORMATION
  Report Type: Spontaneous
  Country: US (occurrence: US)
  Receive Date: 20200420
  Receipt Date: 20200420
  Transmission Date: 20200714
  Serious: Yes (Life-Threatening, Hospitalization, Disabling)
  Sender: FDA-Public Use
  Company Number: None

PATIENT
  Age: 16 Year
  Sex: Female
  Weight: 48.6 kg

DRUGS (1)
  1. GADOLINIUM-BASED CONTRAST AGENT [Suspect]
     Active Substance: GADOLINIUM
     Indication: IMAGING PROCEDURE
     Dosage: ?          OTHER STRENGTH:DON^T KNOW;QUANTITY:1 INJECTION(S);OTHER FREQUENCY:DON^T KNOW;?
     Route: 042

REACTIONS (5)
  - Contrast media reaction [None]
  - Rash [None]
  - Burning sensation [None]
  - Delirium [None]
  - Cognitive disorder [None]

NARRATIVE: CASE EVENT DATE: 20140410
